FAERS Safety Report 16082185 (Version 1)
Quarter: 2019Q1

REPORT INFORMATION
  Report Type: Spontaneous
  Country: US (occurrence: US)
  Receive Date: 20190317
  Receipt Date: 20190317
  Transmission Date: 20190418
  Serious: No
  Sender: FDA-Public Use
  Company Number: US-009507513-1903USA005167

PATIENT
  Sex: Female
  Weight: 85.71 kg

DRUGS (1)
  1. FOSAMAX [Suspect]
     Active Substance: ALENDRONATE SODIUM
     Route: 048

REACTIONS (5)
  - Dysphagia [Unknown]
  - Pain in jaw [Unknown]
  - Arthralgia [Unknown]
  - Cough [Unknown]
  - Oesophageal disorder [Unknown]
